FAERS Safety Report 6021917-0 (Version None)
Quarter: 2008Q4

REPORT INFORMATION
  Report Type: 
  Country: None (occurrence: None)
  Receive Date: 20081229
  Receipt Date: 20081218
  Transmission Date: 20090506
  Serious: Yes (Hospitalization)
  Sender: FDA-Public Use
  Company Number: DE-ROCHE-604493

PATIENT
  Age: 53 Year
  Sex: Female

DRUGS (14)
  1. DIAZEPAM [Suspect]
     Indication: DRUG USE FOR UNKNOWN INDICATION
     Route: 048
     Dates: start: 20080129, end: 20080326
  2. AKINETON [Suspect]
     Indication: DRUG USE FOR UNKNOWN INDICATION
     Route: 048
     Dates: start: 20080206
  3. HALDOL [Suspect]
     Indication: DRUG USE FOR UNKNOWN INDICATION
     Route: 048
     Dates: start: 20080128, end: 20080212
  4. HALDOL [Suspect]
     Route: 048
     Dates: start: 20080213, end: 20080215
  5. HALDOL [Suspect]
     Route: 048
     Dates: start: 20080216, end: 20080222
  6. VALPROATE SODIUM [Suspect]
     Indication: DRUG USE FOR UNKNOWN INDICATION
     Route: 048
     Dates: start: 20080208, end: 20080208
  7. VALPROATE SODIUM [Suspect]
     Route: 048
     Dates: start: 20080209, end: 20080213
  8. VALPROATE SODIUM [Suspect]
     Route: 048
     Dates: start: 20080214, end: 20080215
  9. VALPROATE SODIUM [Suspect]
     Route: 048
     Dates: start: 20080216, end: 20080220
  10. VALPROATE SODIUM [Suspect]
     Route: 048
     Dates: start: 20080221, end: 20080325
  11. RISPERDAL [Suspect]
     Indication: DRUG USE FOR UNKNOWN INDICATION
     Route: 048
     Dates: start: 20080211, end: 20080220
  12. RISPERDAL [Suspect]
     Route: 048
     Dates: start: 20080221, end: 20080225
  13. RISPERDAL [Suspect]
     Route: 048
     Dates: start: 20080226, end: 20080704
  14. ZOPICLONE [Suspect]
     Indication: DRUG USE FOR UNKNOWN INDICATION
     Route: 048
     Dates: start: 20080126

REACTIONS (1)
  - PLEUROTHOTONUS [None]
